FAERS Safety Report 21548144 (Version 6)
Quarter: 2025Q4

REPORT INFORMATION
  Report Type: Report from Study
  Country: US (occurrence: US)
  Receive Date: 20221103
  Receipt Date: 20251224
  Transmission Date: 20260117
  Serious: Yes (Other)
  Sender: PFIZER
  Company Number: US-PFIZER INC-PV202200095272

PATIENT
  Age: 58 Year
  Sex: Female

DRUGS (1)
  1. ESTRING [Suspect]
     Active Substance: ESTRADIOL
     Dosage: UNK

REACTIONS (6)
  - Pneumonia [Unknown]
  - Alopecia [Unknown]
  - COVID-19 [Unknown]
  - Bronchitis [Unknown]
  - Chest pain [Unknown]
  - Back pain [Unknown]
